FAERS Safety Report 23662252 (Version 1)
Quarter: 2024Q1

REPORT INFORMATION
  Report Type: Spontaneous
  Country: US (occurrence: None)
  Receive Date: 20240321
  Receipt Date: 20240321
  Transmission Date: 20240410
  Serious: No
  Sender: FDA-Public Use
  Company Number: None

PATIENT
  Age: 6 Year
  Sex: Male

DRUGS (1)
  1. EPIDIOLEX [Suspect]
     Active Substance: CANNABIDIOL
     Indication: Epilepsy
     Dosage: 100MG BID ORAL
     Route: 048
     Dates: start: 20230725

REACTIONS (2)
  - Acute respiratory failure [None]
  - Gaze palsy [None]

NARRATIVE: CASE EVENT DATE: 20240225
